FAERS Safety Report 5797325-4 (Version None)
Quarter: 2008Q3

REPORT INFORMATION
  Report Type: 
  Country: None (occurrence: None)
  Receive Date: 20080701
  Receipt Date: 20080625
  Transmission Date: 20090109
  Serious: Yes (Hospitalization)
  Sender: FDA-Public Use
  Company Number: FR-PFIZER INC-2008053778

PATIENT
  Sex: Male

DRUGS (4)
  1. SOLU-MEDROL [Suspect]
     Indication: PREMEDICATION
     Route: 042
     Dates: start: 20071227, end: 20080207
  2. CISPLATIN [Suspect]
     Indication: HYPOPHARYNGEAL CANCER
     Route: 042
     Dates: start: 20071227, end: 20080207
  3. GRANISETRON HCL [Suspect]
     Indication: PREMEDICATION
     Dosage: TEXT:1 DOSAGE FORM DAILY
     Route: 042
     Dates: start: 20071227, end: 20080207
  4. ALIZAPRIDE [Suspect]
     Indication: PREMEDICATION
     Dates: start: 20071227, end: 20080207

REACTIONS (2)
  - APHTHOUS STOMATITIS [None]
  - STOMATITIS [None]
